FAERS Safety Report 10570091 (Version 1)
Quarter: 2014Q4

REPORT INFORMATION
  Report Type: Spontaneous
  Country: US (occurrence: None)
  Receive Date: 20141105
  Receipt Date: 20141105
  Transmission Date: 20150529
  Serious: Yes (Congenital Anomaly)
  Sender: FDA-Public Use
  Company Number: UCM201410-000188

PATIENT
  Sex: Female

DRUGS (2)
  1. LAMOTRIGINE (LAMOTRIGINE) (LAMOTRIGINE) [Suspect]
     Active Substance: LAMOTRIGINE
     Route: 064
  2. PHENYTOIN. [Suspect]
     Active Substance: PHENYTOIN
     Route: 064

REACTIONS (3)
  - Hypoplastic left heart syndrome [None]
  - Maternal drugs affecting foetus [None]
  - Foetal anticonvulsant syndrome [None]
